FAERS Safety Report 6782997-8 (Version None)
Quarter: 2010Q2

REPORT INFORMATION
  Report Type: 
  Country: None (occurrence: None)
  Receive Date: 20100622
  Receipt Date: 20100611
  Transmission Date: 20101027
  Serious: Yes (Hospitalization)
  Sender: FDA-Public Use
  Company Number: US-JNJFOC-20100504249

PATIENT
  Sex: Female

DRUGS (4)
  1. CHILDRENS TYLENOL GRAPE [Suspect]
     Indication: EAR INFECTION
     Route: 048
  2. CHILDRENS TYLENOL GRAPE [Suspect]
     Indication: PYREXIA
     Route: 048
  3. CHILDREN'S MOTRIN [Suspect]
     Indication: EAR INFECTION
     Route: 048
  4. CHILDREN'S MOTRIN [Suspect]
     Indication: PYREXIA
     Route: 048

REACTIONS (7)
  - ABASIA [None]
  - DEHYDRATION [None]
  - EATING DISORDER [None]
  - HYPOTONIA [None]
  - PRODUCT QUALITY ISSUE [None]
  - PYREXIA [None]
  - VOMITING [None]
